FAERS Safety Report 4521673-9 (Version None)
Quarter: 2004Q4

REPORT INFORMATION
  Report Type: 
  Country: None (occurrence: None)
  Receive Date: 20041206
  Receipt Date: 20041126
  Transmission Date: 20050328
  Serious: Yes (Death)
  Sender: FDA-Public Use
  Company Number: 2004AP06097

PATIENT
  Age: 65 Year
  Sex: Male

DRUGS (6)
  1. IRESSA [Suspect]
     Indication: LUNG ADENOCARCINOMA
     Dosage: 250 MG DAILY PO
     Route: 048
     Dates: start: 20041004, end: 20041012
  2. ASPIRIN [Suspect]
  3. PLETAL [Suspect]
  4. UFT [Concomitant]
  5. GEMZAR [Concomitant]
  6. TAXOTERE [Concomitant]

REACTIONS (6)
  - DRUG INEFFECTIVE [None]
  - FACE OEDEMA [None]
  - INTERSTITIAL LUNG DISEASE [None]
  - PNEUMONIA [None]
  - RESPIRATORY FAILURE [None]
  - RESPIRATORY TRACT HAEMORRHAGE [None]
